FAERS Safety Report 5989016-1 (Version None)
Quarter: 2008Q4

REPORT INFORMATION
  Report Type: 
  Country: None (occurrence: None)
  Receive Date: 20081210
  Receipt Date: 20081208
  Transmission Date: 20090506
  Serious: Yes (Death)
  Sender: FDA-Public Use
  Company Number: B0535996A

PATIENT
  Age: 60 Year
  Sex: Male
  Weight: 57 kg

DRUGS (2)
  1. ALKERAN [Suspect]
     Indication: STEM CELL TRANSPLANT
     Route: 042
     Dates: start: 20080112, end: 20080113
  2. NEUTROGIN [Suspect]
     Indication: DRUG USE FOR UNKNOWN INDICATION
     Dates: start: 20080116, end: 20080125

REACTIONS (19)
  - ATRIAL FIBRILLATION [None]
  - C-REACTIVE PROTEIN INCREASED [None]
  - COMA [None]
  - CYTOMEGALOVIRUS INFECTION [None]
  - DECREASED APPETITE [None]
  - DELUSION [None]
  - ENCEPHALITIS VIRAL [None]
  - FEBRILE NEUTROPENIA [None]
  - JAUNDICE [None]
  - MELAENA [None]
  - OBSTRUCTIVE AIRWAYS DISORDER [None]
  - OROPHARYNGEAL PAIN [None]
  - PANCYTOPENIA [None]
  - PNEUMONIA [None]
  - PYREXIA [None]
  - RENAL FAILURE [None]
  - SEPTIC SHOCK [None]
  - SINUS RHYTHM [None]
  - STOMATITIS [None]
